FAERS Safety Report 9131355 (Version 3)
Quarter: 2013Q4

REPORT INFORMATION
  Report Type: Report from Study
  Country: US (occurrence: US)
  Receive Date: 20130301
  Receipt Date: 20131230
  Transmission Date: 20140711
  Serious: Yes (Hospitalization)
  Sender: FDA-Public Use
  Company Number: US-ACTELION-A-NJ2013-79893

PATIENT
  Age: 66 Year
  Sex: Female

DRUGS (16)
  1. VITAMIN C [Concomitant]
     Dosage: UNK, QD
  2. VITAMIN D [Concomitant]
     Dosage: 4000 U, QD
  3. FERROUS SULFATE [Concomitant]
     Dosage: UNK
  4. SILDENAFIL [Concomitant]
  5. TRACLEER [Suspect]
     Indication: PULMONARY ARTERIAL HYPERTENSION
     Dosage: 125 MG, BID
     Route: 048
     Dates: start: 201106
  6. REVATIO [Concomitant]
     Dosage: 20 MG, UNK
     Dates: start: 2011
  7. FUROSEMIDE [Concomitant]
     Dosage: 40 MG, BID
     Dates: start: 2011, end: 201302
  8. FUROSEMIDE [Concomitant]
     Dosage: 40 MG, QD
     Dates: start: 201302
  9. NOVOLOG [Concomitant]
     Dosage: SLIDING SCALE
     Dates: start: 2011
  10. POTASSIUM [Concomitant]
     Dosage: 20 MEQ, BID
     Dates: start: 2011
  11. METOLAZONE [Concomitant]
     Dosage: 2.5 MG, QD
     Dates: start: 2011, end: 201302
  12. METOLAZONE [Concomitant]
     Dosage: 5 UNK, UNK
     Dates: start: 201302
  13. PREDNISONE [Concomitant]
     Dosage: 8 UNK, UNK
     Dates: start: 2012, end: 201301
  14. PREDNISONE [Concomitant]
     Dosage: 80 MG, QD
     Dates: end: 2012
  15. PREDNISONE [Concomitant]
     Dosage: 10 UNK, UNK
  16. PREDNISONE [Concomitant]
     Dosage: 20 UNK, UNK

REACTIONS (5)
  - Respiratory disorder [Unknown]
  - Pain in extremity [Unknown]
  - Abnormal loss of weight [Not Recovered/Not Resolved]
  - Dyspnoea [Recovered/Resolved]
  - Blood cholesterol increased [Unknown]
